FAERS Safety Report 13779072 (Version 1)
Quarter: 2017Q3

REPORT INFORMATION
  Report Type: Spontaneous
  Country: FR (occurrence: FR)
  Receive Date: 20170721
  Receipt Date: 20170721
  Transmission Date: 20171127
  Serious: Yes (Hospitalization)
  Sender: FDA-Public Use
  Company Number: FR-PRINSTON PHARMACEUTICAL INC.-2017PRN00339

PATIENT
  Age: 38 Year
  Sex: Male

DRUGS (2)
  1. MIGLUSTAT. [Suspect]
     Active Substance: MIGLUSTAT
     Route: 065
  2. CLONAZEPAM. [Suspect]
     Active Substance: CLONAZEPAM
     Route: 065

REACTIONS (1)
  - Dystonia [Recovering/Resolving]
